FAERS Safety Report 17020596 (Version 1)
Quarter: 2019Q4

REPORT INFORMATION
  Report Type: Report from Study
  Country: US (occurrence: US)
  Receive Date: 20191112
  Receipt Date: 20191112
  Transmission Date: 20200122
  Serious: No
  Sender: FDA-Public Use
  Company Number: NVSC2019US032823

PATIENT
  Sex: Male

DRUGS (1)
  1. AFINITOR [Suspect]
     Active Substance: EVEROLIMUS
     Indication: PARTIAL SEIZURES
     Dosage: 10 MG, QD
     Route: 048
     Dates: start: 20191025

REACTIONS (3)
  - Oral disorder [Unknown]
  - Oedema [Unknown]
  - Dyspnoea [Unknown]
